FAERS Safety Report 9280716 (Version 1)
Quarter: 2013Q2

REPORT INFORMATION
  Report Type: Spontaneous
  Country: US (occurrence: US)
  Receive Date: 20130509
  Receipt Date: 20130509
  Transmission Date: 20140414
  Serious: Yes (Other)
  Sender: FDA-Public Use
  Company Number: US-PFIZER INC-2013141277

PATIENT
  Age: 28 Year
  Sex: Male
  Weight: 90.7 kg

DRUGS (1)
  1. VIAGRA [Suspect]
     Indication: ERECTILE DYSFUNCTION
     Dosage: 400 MG, 6X/DAY
     Dates: start: 2012

REACTIONS (2)
  - Overdose [Unknown]
  - Erection increased [Unknown]
